FAERS Safety Report 7917741-1 (Version None)
Quarter: 2011Q4

REPORT INFORMATION
  Report Type: 
  Country: None (occurrence: None)
  Receive Date: 20111116
  Receipt Date: 20110627
  Transmission Date: 20120403
  Serious: No
  Sender: FDA-Public Use
  Company Number: US-MYLANLABS-2011S1013289

PATIENT
  Age: 63 Year
  Sex: Male

DRUGS (2)
  1. ATENOLOL AND CHLORTHALIDONE [Suspect]
     Indication: BLOOD PRESSURE INCREASED
     Route: 048
  2. ATENOLOL AND CHLORTHALIDONE [Suspect]
     Route: 048

REACTIONS (5)
  - HYPOAESTHESIA [None]
  - HEADACHE [None]
  - DRUG INEFFECTIVE [None]
  - BLOOD PRESSURE INCREASED [None]
  - PARAESTHESIA [None]
